FAERS Safety Report 8874438 (Version 1)
Quarter: 2012Q4

REPORT INFORMATION
  Report Type: 
  Country: KR (occurrence: KR)
  Receive Date: 20121031
  Receipt Date: 20121031
  Transmission Date: 20130627
  Serious: Yes (Other)
  Sender: FDA-Public Use
  Company Number: KR-US-EMD SERONO, INC.-7170778

PATIENT
  Sex: Female

DRUGS (2)
  1. REBIF [Suspect]
     Indication: MULTIPLE SCLEROSIS
     Route: 058
     Dates: start: 20100701
  2. TRILEPTAL [Suspect]
     Indication: CONVULSION

REACTIONS (2)
  - Grand mal convulsion [Recovering/Resolving]
  - Petit mal epilepsy [Recovering/Resolving]
